FAERS Safety Report 5844023-4 (Version None)
Quarter: 2008Q3

REPORT INFORMATION
  Report Type: 
  Country: None (occurrence: None)
  Receive Date: 20080813
  Receipt Date: 20080806
  Transmission Date: 20090109
  Serious: Yes (Other)
  Sender: FDA-Public Use
  Company Number: US-SANOFI-SYNTHELABO-A03200803136

PATIENT
  Sex: Female

DRUGS (2)
  1. FLUOROURACIL [Concomitant]
     Indication: DRUG USE FOR UNKNOWN INDICATION
     Route: 042
  2. ELOXATIN [Suspect]
     Indication: COLORECTAL CANCER METASTATIC
     Route: 042

REACTIONS (1)
  - ACUTE MYOCARDIAL INFARCTION [None]
